FAERS Safety Report 21834041 (Version 1)
Quarter: 2023Q1

REPORT INFORMATION
  Report Type: Spontaneous
  Country: US (occurrence: US)
  Receive Date: 20230108
  Receipt Date: 20230108
  Transmission Date: 20230417
  Serious: No
  Sender: FDA-Public Use
  Company Number: US-ROCHE-3031894

PATIENT
  Sex: Male
  Weight: 68.94 kg

DRUGS (2)
  1. HEMLIBRA [Suspect]
     Active Substance: EMICIZUMAB-KXWH
     Indication: Factor VIII deficiency
     Dosage: 60 MG/0.4 ML, 105 MG/7 ML
     Route: 058
     Dates: start: 20200926
  2. HEMLIBRA [Suspect]
     Active Substance: EMICIZUMAB-KXWH
     Route: 058

REACTIONS (2)
  - Weight decreased [Unknown]
  - Weight increased [Unknown]
